FAERS Safety Report 4714117-5 (Version None)
Quarter: 2005Q3

REPORT INFORMATION
  Report Type: 
  Country: None (occurrence: None)
  Receive Date: 20050712
  Receipt Date: 20050627
  Transmission Date: 20060218
  Serious: Yes (Hospitalization)
  Sender: FDA-Public Use
  Company Number: FR_050606714

PATIENT
  Sex: Female

DRUGS (4)
  1. FORTEO [Suspect]
     Indication: OSTEOPOROSIS
     Dosage: 20 UG DAY
     Dates: start: 20050624, end: 20050627
  2. LEVOTHYROXINE SODIUM [Concomitant]
  3. PAROXETINE HYDROCHLORIDE [Concomitant]
  4. PRAVASTATIN [Concomitant]

REACTIONS (2)
  - FALL [None]
  - MALAISE [None]
